FAERS Safety Report 24699113 (Version 1)
Quarter: 2024Q4

REPORT INFORMATION
  Report Type: Other
  Country: CA (occurrence: CA)
  Receive Date: 20241205
  Receipt Date: 20241205
  Transmission Date: 20250115
  Serious: Yes (Other)
  Sender: APOTEX
  Company Number: CA-APOTEX-2024AP019120

PATIENT
  Sex: Male

DRUGS (2)
  1. GALANTAMINE [Suspect]
     Active Substance: GALANTAMINE
     Indication: Amnesia
     Dosage: UNK
     Route: 065
  2. MEMANTINE [Suspect]
     Active Substance: MEMANTINE
     Indication: Product used for unknown indication
     Dosage: UNK
     Route: 065

REACTIONS (5)
  - Paralysis [Unknown]
  - Freezing phenomenon [Unknown]
  - Aphasia [Unknown]
  - Headache [Unknown]
  - Pain [Unknown]
